FAERS Safety Report 25502250 (Version 2)
Quarter: 2025Q3

REPORT INFORMATION
  Report Type: Report from Study
  Country: US (occurrence: US)
  Receive Date: 20250702
  Receipt Date: 20250709
  Transmission Date: 20251021
  Serious: Yes (Other)
  Sender: STALLERGENES
  Company Number: US-STALCOR-2025-AER-02191

PATIENT
  Age: 15 Year
  Sex: Female
  Weight: 45.81 kg

DRUGS (6)
  1. PALFORZIA [Suspect]
     Active Substance: PEANUT
     Indication: Food allergy
     Dosage: (REACTIVE DOSE), MAINTENANCE DOSE LEVEL 11 AT 300MG
     Route: 048
     Dates: start: 20250624
  2. PALFORZIA [Suspect]
     Active Substance: PEANUT
     Dosage: STARTED MAINTENANCE DOSE LEVEL 11 AT 300MG- SINCE 26-FEB-2025
     Route: 048
     Dates: start: 20250226
  3. PALFORZIA [Suspect]
     Active Substance: PEANUT
     Dosage: IDE (4-17) NDC 71881-113-13 IN JUL 2024
     Route: 048
  4. PALFORZIA [Suspect]
     Active Substance: PEANUT
     Dosage: DOSE REDUCED TO 160MG IN RESPONSE TO REPORTED ADVERSE EVENTS
     Route: 048
     Dates: start: 20250626
  5. ZYRTEC [Concomitant]
     Active Substance: CETIRIZINE HYDROCHLORIDE
     Indication: Product used for unknown indication
  6. PEPCID [Concomitant]
     Active Substance: FAMOTIDINE
     Indication: Product used for unknown indication

REACTIONS (8)
  - Eye oedema [Recovered/Resolved]
  - Respiratory distress [Recovered/Resolved]
  - Eyelid oedema [Recovered/Resolved]
  - Hypersensitivity [Recovered/Resolved]
  - Urticaria [Recovered/Resolved]
  - Abdominal discomfort [Recovered/Resolved]
  - Throat irritation [Recovered/Resolved]
  - Product dose omission issue [Recovered/Resolved]

NARRATIVE: CASE EVENT DATE: 20250623
